FAERS Safety Report 19729217 (Version 1)
Quarter: 2021Q3

REPORT INFORMATION
  Report Type: Spontaneous
  Country: US (occurrence: US)
  Receive Date: 20210821
  Receipt Date: 20210821
  Transmission Date: 20211014
  Serious: Yes (Life-Threatening, Hospitalization, Other)
  Sender: FDA-Public Use
  Company Number: US-SCIEGENPHARMA-2021SCILIT00018

PATIENT
  Age: 26 Year
  Sex: Female

DRUGS (5)
  1. BUPROPION. [Suspect]
     Active Substance: BUPROPION
     Indication: PRODUCT USED FOR UNKNOWN INDICATION
     Route: 065
  2. GOLYTELY [Interacting]
     Active Substance: POLYETHYLENE GLYCOL 3350\POTASSIUM CHLORIDE\SODIUM BICARBONATE\SODIUM CHLORIDE\SODIUM SULFATE
     Indication: PRODUCT USED FOR UNKNOWN INDICATION
     Route: 065
  3. ACTIVATED CHARCOAL. [Interacting]
     Active Substance: ACTIVATED CHARCOAL
     Indication: PRODUCT USED FOR UNKNOWN INDICATION
     Route: 065
  4. MAGNESIUM SULFATE. [Interacting]
     Active Substance: MAGNESIUM SULFATE
     Indication: PRODUCT USED FOR UNKNOWN INDICATION
     Route: 065
  5. ATIVAN [Interacting]
     Active Substance: LORAZEPAM
     Indication: PRODUCT USED FOR UNKNOWN INDICATION
     Route: 065

REACTIONS (11)
  - Mental status changes [Recovered/Resolved]
  - Intestinal dilatation [Recovering/Resolving]
  - Tachycardia [Recovered/Resolved]
  - Nystagmus [Recovered/Resolved]
  - Pneumatosis intestinalis [Recovering/Resolving]
  - Intentional overdose [Unknown]
  - Intestinal ischaemia [Recovered/Resolved]
  - Abdominal distension [Recovered/Resolved]
  - Electrocardiogram QT prolonged [Recovered/Resolved]
  - Tachypnoea [Recovered/Resolved]
  - Portal venous gas [Recovering/Resolving]
